FAERS Safety Report 23802800 (Version 1)
Quarter: 2024Q2

REPORT INFORMATION
  Report Type: Report from Study
  Country: JP (occurrence: JP)
  Receive Date: 20240501
  Receipt Date: 20240501
  Transmission Date: 20240716
  Serious: Yes (Other)
  Sender: FDA-Public Use
  Company Number: JP-SUN PHARMACEUTICAL INDUSTRIES LTD-2024RR-444821

PATIENT
  Age: 77 Year
  Sex: Female

DRUGS (3)
  1. DASATINIB [Suspect]
     Active Substance: DASATINIB
     Indication: Chronic myeloid leukaemia (in remission)
     Dosage: 50 MILLIGRAM, UNK
     Route: 065
  2. IMATINIB [Suspect]
     Active Substance: IMATINIB
     Indication: Chronic myeloid leukaemia (in remission)
     Dosage: UNK
     Route: 065
  3. NILOTINIB [Suspect]
     Active Substance: NILOTINIB
     Indication: Chronic myeloid leukaemia (in remission)
     Dosage: 400 MILLIGRAM, UNK
     Route: 065
     Dates: start: 200906

REACTIONS (7)
  - Pancytopenia [Unknown]
  - Hepatic function abnormal [Unknown]
  - Depression [Unknown]
  - Eosinophilia [Unknown]
  - Asthma [Unknown]
  - Rash [Unknown]
  - Drug ineffective [Unknown]
